FAERS Safety Report 6151818-9 (Version None)
Quarter: 2009Q2

REPORT INFORMATION
  Report Type: 
  Country: None (occurrence: None)
  Receive Date: 20090410
  Receipt Date: 20070629
  Transmission Date: 20091009
  Serious: Yes (Hospitalization)
  Sender: FDA-Public Use
  Company Number: US-ASTRAZENECA-2006UW24789

PATIENT
  Age: 18615 Day
  Sex: Female
  Weight: 64.4 kg

DRUGS (20)
  1. SEROQUEL [Suspect]
     Indication: DEPRESSION
     Route: 048
     Dates: start: 20010101, end: 20040101
  2. SEROQUEL [Suspect]
     Route: 048
     Dates: start: 20010604
  3. LEXAPRO [Concomitant]
  4. GLUCOPHAGE [Concomitant]
  5. KLONOPIN [Concomitant]
  6. HYDROCODON [Concomitant]
  7. ZOCOR [Concomitant]
  8. DEPAKOTE ER [Concomitant]
  9. BACLOFEN [Concomitant]
  10. CLARINEX [Concomitant]
  11. METHYLPREDNISOLONE 4MG TAB [Concomitant]
  12. PREDNISON [Concomitant]
  13. CYMBALTA [Concomitant]
  14. SINGULAIR [Concomitant]
  15. FLONASE [Concomitant]
  16. VYTORIN [Concomitant]
  17. XOLAIR [Concomitant]
  18. ALLEGRA [Concomitant]
  19. PROVENTIL [Concomitant]
  20. PROZAC [Concomitant]

REACTIONS (20)
  - ABDOMINAL PAIN UPPER [None]
  - CHRONIC OBSTRUCTIVE PULMONARY DISEASE [None]
  - CHRONIC SINUSITIS [None]
  - CONJUNCTIVITIS ALLERGIC [None]
  - DIABETES MELLITUS [None]
  - DIABETIC GASTROPARESIS [None]
  - DIVERTICULUM [None]
  - DYSPNOEA PAROXYSMAL NOCTURNAL [None]
  - ECZEMA ASTEATOTIC [None]
  - FATIGUE [None]
  - GASTROENTERITIS [None]
  - HEADACHE [None]
  - INSOMNIA [None]
  - NASAL POLYPS [None]
  - NIGHT SWEATS [None]
  - OSTEOPENIA [None]
  - PELVIC PAIN [None]
  - PHARYNGITIS [None]
  - UPPER RESPIRATORY TRACT INFECTION [None]
  - VULVOVAGINAL DRYNESS [None]
